FAERS Safety Report 12386231 (Version 2)
Quarter: 2022Q1

REPORT INFORMATION
  Report Type: Report from Study
  Country: IN (occurrence: IN)
  Receive Date: 20160519
  Receipt Date: 20220207
  Transmission Date: 20220423
  Serious: Yes (Hospitalization)
  Sender: FDA-Public Use
  Company Number: IN-002147023-PHHY2016IN062898

PATIENT

DRUGS (4)
  1. RUXOLITINIB [Suspect]
     Active Substance: RUXOLITINIB
     Indication: Myelofibrosis
     Dosage: 20 MG, BID
     Route: 048
     Dates: start: 20160125, end: 20160318
  2. RUXOLITINIB [Suspect]
     Active Substance: RUXOLITINIB
     Dosage: 20 MG, BID
     Route: 048
     Dates: start: 20160502
  3. RUXOLITINIB [Suspect]
     Active Substance: RUXOLITINIB
     Dosage: 20 MG, QOD (ALTERNATE DAYS)
     Route: 065
     Dates: start: 20200818
  4. RUXOLITINIB [Suspect]
     Active Substance: RUXOLITINIB
     Dosage: 20 MG, QOD
     Route: 065
     Dates: start: 20220107

REACTIONS (4)
  - Herpes virus infection [Recovering/Resolving]
  - Platelet count decreased [Recovered/Resolved]
  - Product use issue [Not Recovered/Not Resolved]
  - Typhoid fever [Recovered/Resolved]

NARRATIVE: CASE EVENT DATE: 20160318
